FAERS Safety Report 4735698-1 (Version None)
Quarter: 2005Q3

REPORT INFORMATION
  Report Type: 
  Country: None (occurrence: None)
  Receive Date: 20050803
  Receipt Date: 20050718
  Transmission Date: 20060218
  Serious: Yes (Other)
  Sender: FDA-Public Use
  Company Number: US_0507120195

PATIENT
  Age: 62 Year
  Sex: Female
  Weight: 86 kg

DRUGS (9)
  1. PROZAC [Suspect]
     Indication: DEPRESSION
     Dosage: 80 MG DAY
     Dates: start: 20050207
  2. LEXAPRO [Concomitant]
  3. ABILIFY [Concomitant]
  4. DEPAKOTE [Concomitant]
  5. LISINOPRIL [Concomitant]
  6. DIOVAN [Concomitant]
  7. COREG [Concomitant]
  8. WELLBUTRIN [Concomitant]
  9. HYDROCODONE W/APAP [Concomitant]

REACTIONS (3)
  - ENCEPHALOMALACIA [None]
  - PARKINSONISM [None]
  - TREMOR [None]
